FAERS Safety Report 20430406 (Version 1)
Quarter: 2022Q1

REPORT INFORMATION
  Report Type: Report from Study
  Country: FR (occurrence: FR)
  Receive Date: 20220204
  Receipt Date: 20220204
  Transmission Date: 20220424
  Serious: Yes (Hospitalization)
  Sender: FDA-Public Use
  Company Number: FR-SERVIER-S20007082

PATIENT

DRUGS (14)
  1. PEGASPARGASE [Suspect]
     Active Substance: PEGASPARGASE
     Indication: Acute lymphocytic leukaemia
     Dosage: 900 IU, ON D12 AND D26
     Route: 042
     Dates: start: 20200131
  2. TN UNSPECIFIED [Concomitant]
     Indication: Acute lymphocytic leukaemia
     Dosage: 1.1 MG, (D8,D15,D22,D24,D29)
     Route: 042
     Dates: start: 20200128
  3. TN UNSPECIFIED [Concomitant]
     Indication: Acute lymphocytic leukaemia
     Dosage: 22MG, (D8,D15,D22,D24,D29)
     Route: 042
     Dates: start: 20200128
  4. TN UNSPECIFIED [Concomitant]
     Indication: Acute lymphocytic leukaemia
     Dosage: 45MG (D8 TO D24)
     Route: 048
     Dates: start: 20200128
  5. TN UNSPECIFIED [Concomitant]
     Indication: Acute lymphocytic leukaemia
     Dosage: 12MG, (D1 AND D12, D24)
     Route: 037
     Dates: start: 20200127
  6. TN UNSPECIFIED [Concomitant]
     Indication: Pyrexia
     Dosage: 1500MG
     Route: 042
     Dates: start: 20200119
  7. TN UNSPECIFIED [Concomitant]
     Indication: Pain
  8. TN UNSPECIFIED [Concomitant]
     Indication: Constipation prophylaxis
     Dosage: 15 MG
     Route: 048
     Dates: start: 20200123
  9. TN UNSPECIFIED [Concomitant]
     Indication: Hypertension
     Dosage: 15 MG
     Route: 048
     Dates: start: 20200123
  10. TN UNSPECIFIED [Concomitant]
     Indication: Hypertension
     Dosage: 9 MG
     Route: 042
     Dates: start: 20200119
  11. TN UNSPECIFIED [Concomitant]
     Indication: Renal failure
     Dosage: 3 MG
     Route: 042
     Dates: start: 20200123
  12. TN UNSPECIFIED [Concomitant]
     Indication: Tumour lysis syndrome
  13. TN UNSPECIFIED [Concomitant]
     Indication: Premedication
     Dosage: 2.5 MG
     Route: 042
     Dates: start: 20200131
  14. TN UNSPECIFIED [Concomitant]
     Indication: Prophylaxis of nausea and vomiting
     Dosage: 45 MG
     Route: 042
     Dates: start: 20200128

REACTIONS (5)
  - Hepatic infection [Not Recovered/Not Resolved]
  - Splenic infection [Not Recovered/Not Resolved]
  - Kidney infection [Not Recovered/Not Resolved]
  - Klebsiella sepsis [Recovering/Resolving]
  - Enterococcal sepsis [Recovered/Resolved]

NARRATIVE: CASE EVENT DATE: 20200211
